FAERS Safety Report 4577415-4 (Version None)
Quarter: 2005Q1

REPORT INFORMATION
  Report Type: 
  Country: None (occurrence: None)
  Receive Date: 20050208
  Receipt Date: 20040910
  Transmission Date: 20050727
  Serious: Yes (Death)
  Sender: FDA-Public Use
  Company Number: 001#1#2004-00186

PATIENT
  Age: 62 Year
  Sex: Female

DRUGS (23)
  1. ALPROSTADIL [Suspect]
     Dosage: 40 MCG (20MCG 2 IN 1 DAY(S), INTRAVENOUS DRIP
     Route: 041
     Dates: start: 20040902, end: 20040906
  2. TACROLIMUS (TACROLIMUS) [Concomitant]
  3. PREDNISONE [Concomitant]
  4. ALFACALCIDOL (ALFACALCIDOL) [Concomitant]
  5. PANTOPRAZOL (PANTOPRAZOLE SODIUM) [Concomitant]
  6. SODIUMHYDROGENCARBONATE [Concomitant]
  7. LISINOPRIL [Concomitant]
  8. LEVOTHYROXINE (LEVOTHYROXINE SODIUM) [Concomitant]
  9. ACETOLYT (CALCIUM CITRATE, SODIUM CITRATE) [Concomitant]
  10. AMPHOTERICIN B [Concomitant]
  11. KREON (PANCREATIN) [Concomitant]
  12. CIPROFLOXACIN [Concomitant]
  13. FENTANYL [Concomitant]
  14. ENOXAPARINE (HEPARIN-FRACTION, SODIUIM SALT) [Concomitant]
  15. HEPARIN [Concomitant]
  16. PIRITRAMID (PIRITRAMIDE) [Concomitant]
  17. METAMIZOL (METAMIZOLE SODIUM) [Concomitant]
  18. VANCOMYCIN [Concomitant]
  19. AUGMENTAN (AMOXICILLIN TRIHYDRATE, CLAVULANATE POTASSIUM) [Concomitant]
  20. GENTAMICIN [Concomitant]
  21. ACETYLSALICYLIC-ACID (ACETYLSALICYLATE LYSINE) [Concomitant]
  22. IBRANDRONAC ACID (IBRADRONIC ACID) [Concomitant]
  23. CALCIUM (CALCIUM) [Concomitant]

REACTIONS (3)
  - HAEMORRHAGE INTRACRANIAL [None]
  - HEPARIN-INDUCED THROMBOCYTOPENIA [None]
  - THROMBOCYTOPENIA [None]
